FAERS Safety Report 8798249 (Version 2)
Quarter: 2012Q4

REPORT INFORMATION
  Report Type: Report from Study
  Country: GB (occurrence: GB)
  Receive Date: 20120920
  Receipt Date: 20121022
  Transmission Date: 20130627
  Serious: Yes (Hospitalization)
  Sender: FDA-Public Use
  Company Number: GB-PFIZER INC-2012225009

PATIENT
  Age: 48 Year
  Sex: Female
  Weight: 65 kg

DRUGS (2)
  1. AXITINIB [Suspect]
     Indication: ANGIOSARCOMA
     Dosage: 3 mg, UNK
     Dates: start: 20120322
  2. DALTEPARIN [Concomitant]
     Indication: VENOUS THROMBOSIS
     Dosage: 15000 IU, 1x/day
     Route: 058
     Dates: start: 20120528

REACTIONS (2)
  - Pneumothorax [Recovered/Resolved]
  - Lower respiratory tract infection [Recovered/Resolved]
